FAERS Safety Report 7406134-1 (Version None)
Quarter: 2011Q2

REPORT INFORMATION
  Report Type: 
  Country: None (occurrence: None)
  Receive Date: 20110411
  Receipt Date: 20110209
  Transmission Date: 20111010
  Serious: Yes (Other)
  Sender: FDA-Public Use
  Company Number: US-AMGEN-USASP2011008223

PATIENT

DRUGS (3)
  1. DIPHENHYDRAMINE HCL [Concomitant]
  2. CETUXIMAB [Concomitant]
  3. VECTIBIX [Suspect]
     Indication: PRODUCT USED FOR UNKNOWN INDICATION

REACTIONS (1)
  - DYSPNOEA [None]
